FAERS Safety Report 17439258 (Version 1)
Quarter: 2020Q1

REPORT INFORMATION
  Report Type: Spontaneous
  Country: US (occurrence: US)
  Receive Date: 20200219
  Receipt Date: 20200219
  Transmission Date: 20200409
  Serious: No
  Sender: FDA-Public Use
  Company Number: None

PATIENT
  Age: 38 Year
  Sex: Female
  Weight: 78.75 kg

DRUGS (2)
  1. GENERIC BIRTH CONTROL PILLS [Concomitant]
  2. OCEAN POTION SPF15 SUNSCREEN [Suspect]
     Active Substance: AVOBENZONE\HOMOSALATE\OCTISALATE\OCTOCRYLENE
     Indication: PROPHYLAXIS AGAINST SOLAR RADIATION
     Route: 061
     Dates: start: 20200209, end: 20200213

REACTIONS (4)
  - Application site pruritus [None]
  - Application site rash [None]
  - Product formulation issue [None]
  - Application site erythema [None]

NARRATIVE: CASE EVENT DATE: 20200210
